FAERS Safety Report 7585343-5 (Version None)
Quarter: 2011Q3

REPORT INFORMATION
  Report Type: 
  Country: None (occurrence: None)
  Receive Date: 20110701
  Receipt Date: 20110615
  Transmission Date: 20111222
  Serious: Yes (Death, Other)
  Sender: FDA-Public Use
  Company Number: US-BAYER-200939677NA

PATIENT
  Sex: Male

DRUGS (9)
  1. TRASYLOL [Suspect]
     Indication: PRODUCT USED FOR UNKNOWN INDICATION
     Dosage: 200 ML, ONCE, LOADING DOSE
     Route: 042
     Dates: start: 20041011, end: 20041012
  2. TRASYLOL [Suspect]
     Dosage: 50 ML INFUSION
     Route: 042
     Dates: start: 20041011, end: 20041012
  3. PACKED RED BLOOD CELLS [Concomitant]
     Dosage: 2 U, ONCE
     Route: 042
     Dates: start: 20041011, end: 20041012
  4. PLATELETS [Concomitant]
     Dosage: 10 U, ONCE
     Route: 042
     Dates: start: 20041011, end: 20041012
  5. FRESH FROZEN PLASMA [Concomitant]
     Dosage: 6 U, ONCE
     Route: 042
     Dates: start: 20041011, end: 20041012
  6. EPINEPHRINE [Concomitant]
     Dosage: DOSAGE TITRATED
     Route: 042
  7. HEPARIN [Concomitant]
     Dosage: DOSAGE TITRATED
     Route: 042
  8. PROTAMINE SULFATE [Concomitant]
     Dosage: 400 MG, UNK
     Route: 042
  9. VANCOMYCIN [Concomitant]
     Dosage: 1.5 G, UNK
     Route: 042

REACTIONS (13)
  - STRESS [None]
  - ANXIETY [None]
  - ANHEDONIA [None]
  - MULTI-ORGAN FAILURE [None]
  - RENAL INJURY [None]
  - FEAR [None]
  - DEATH [None]
  - EMOTIONAL DISTRESS [None]
  - RENAL FAILURE [None]
  - PAIN [None]
  - UNEVALUABLE EVENT [None]
  - RENAL IMPAIRMENT [None]
  - INJURY [None]
